FAERS Safety Report 5409708-2 (Version None)
Quarter: 2007Q3

REPORT INFORMATION
  Report Type: 
  Country: None (occurrence: None)
  Receive Date: 20070809
  Receipt Date: 20070807
  Transmission Date: 20080115
  Serious: Yes (Other)
  Sender: FDA-Public Use
  Company Number: A0646624A

PATIENT
  Age: 53 Year
  Sex: Female

DRUGS (13)
  1. LAMICTAL [Suspect]
     Indication: CONVULSION
     Dosage: 100MG THREE TIMES PER DAY
     Route: 048
     Dates: start: 20070321
  2. NAMENDA [Concomitant]
  3. ZONEGRAN [Concomitant]
  4. VERAPAMIL [Concomitant]
  5. UNKNOWN DRUG [Concomitant]
  6. PROZAC [Concomitant]
  7. LEVBID [Concomitant]
  8. CYMBALTA [Concomitant]
  9. LIPITOR [Concomitant]
  10. ACTOS [Concomitant]
  11. INSULIN [Concomitant]
  12. LANTUS [Concomitant]
  13. NOVOLOG [Concomitant]

REACTIONS (2)
  - PAIN IN JAW [None]
  - TOOTHACHE [None]
